FAERS Safety Report 9542015 (Version 1)
Quarter: 2013Q3

REPORT INFORMATION
  Report Type: Report from Study
  Country: CA (occurrence: CA)
  Receive Date: 20130923
  Receipt Date: 20130923
  Transmission Date: 20140515
  Serious: Yes (Hospitalization)
  Sender: FDA-Public Use
  Company Number: CA-JNJFOC-20130909629

PATIENT
  Age: 49 Year
  Sex: Male
  Weight: 80 kg

DRUGS (4)
  1. REMICADE [Suspect]
     Indication: CROHN^S DISEASE
     Dosage: THERAPY DURATION 2 YEARS
     Route: 042
     Dates: start: 20110511
  2. IMURAN [Concomitant]
     Route: 065
  3. POTASSIUM [Concomitant]
     Route: 065
  4. B12 INJECTIONS [Concomitant]
     Route: 065

REACTIONS (2)
  - Dehydration [Unknown]
  - Vomiting [Unknown]
